FAERS Safety Report 18240660 (Version 1)
Quarter: 2020Q3

REPORT INFORMATION
  Report Type: Spontaneous
  Country: GB (occurrence: GB)
  Receive Date: 20200908
  Receipt Date: 20200908
  Transmission Date: 20201103
  Serious: Yes (Hospitalization, Other)
  Sender: FDA-Public Use
  Company Number: GB-AMGEN-GBRSP2020141863

PATIENT
  Age: 33 Year
  Sex: Female

DRUGS (2)
  1. XGEVA [Suspect]
     Active Substance: DENOSUMAB
     Indication: BONE PAIN
     Dosage: 120 MILLIGRAM
     Route: 058
     Dates: start: 2020
  2. XGEVA [Suspect]
     Active Substance: DENOSUMAB
     Indication: ADENOCARCINOMA GASTRIC

REACTIONS (10)
  - Hypophosphataemia [Unknown]
  - Anaemia [Unknown]
  - Blood parathyroid hormone increased [Unknown]
  - Blood magnesium decreased [Unknown]
  - Pathological fracture [Unknown]
  - Metastases to bone [Unknown]
  - Vitamin D deficiency [Unknown]
  - Hypocalcaemia [Unknown]
  - Paraesthesia [Unknown]
  - Disease progression [Unknown]

NARRATIVE: CASE EVENT DATE: 2020
